FAERS Safety Report 16989975 (Version 1)
Quarter: 2019Q4

REPORT INFORMATION
  Report Type: Report from Study
  Country: US (occurrence: US)
  Receive Date: 20191104
  Receipt Date: 20191104
  Transmission Date: 20200122
  Serious: Yes (Hospitalization)
  Sender: FDA-Public Use
  Company Number: US-BAYER-2019-193888

PATIENT
  Age: 61 Year
  Sex: Female

DRUGS (1)
  1. STIVARGA [Suspect]
     Active Substance: REGORAFENIB
     Indication: COLON CANCER
     Dosage: 160 MG, QD, FOR 21 DAYS OF A 28 DAY CYCLE
     Route: 048
     Dates: start: 20190816

REACTIONS (2)
  - Wound [Recovering/Resolving]
  - Gastrointestinal tube removal [Unknown]
